FAERS Safety Report 15728665 (Version 3)
Quarter: 2019Q1

REPORT INFORMATION
  Report Type: Report from Study
  Country: PH (occurrence: PH)
  Receive Date: 20181217
  Receipt Date: 20190110
  Transmission Date: 20190417
  Serious: Yes (Death, Other)
  Sender: FDA-Public Use
  Company Number: PHHY2018PH187545

PATIENT
  Age: 58 Year
  Sex: Female

DRUGS (4)
  1. GLIVEC [Suspect]
     Active Substance: IMATINIB MESYLATE
     Indication: GASTROINTESTINAL STROMAL TUMOUR
     Dosage: 400 MG, UNK
     Route: 048
     Dates: start: 20150806
  2. GLIVEC [Suspect]
     Active Substance: IMATINIB MESYLATE
     Dosage: 800 MG, UNK
     Route: 048
     Dates: start: 20170814
  3. SUNITINIB [Concomitant]
     Active Substance: SUNITINIB
     Indication: PRODUCT USED FOR UNKNOWN INDICATION
     Dosage: UNK
     Route: 065
     Dates: end: 201705
  4. GLIVEC [Suspect]
     Active Substance: IMATINIB MESYLATE
     Dosage: 600 MG, UNK
     Route: 048
     Dates: start: 2016

REACTIONS (8)
  - Septic shock [Fatal]
  - Cyst [Unknown]
  - Gastrointestinal stromal tumour [Fatal]
  - Peptic ulcer haemorrhage [Fatal]
  - Sepsis [Fatal]
  - Upper gastrointestinal haemorrhage [Fatal]
  - Diabetic foot [Fatal]
  - Ascites [Unknown]

NARRATIVE: CASE EVENT DATE: 20161119
